FAERS Safety Report 5870062-3 (Version None)
Quarter: 2008Q3

REPORT INFORMATION
  Report Type: 
  Country: None (occurrence: None)
  Receive Date: 20080904
  Receipt Date: 20080625
  Transmission Date: 20090109
  Serious: No
  Sender: FDA-Public Use
  Company Number: US-BAYER-200827630NA

PATIENT
  Age: 41 Year
  Sex: Female
  Weight: 75 kg

DRUGS (3)
  1. YAZ [Suspect]
     Indication: CONTRACEPTION
     Route: 048
     Dates: start: 20080301
  2. LEVAQUIN [Concomitant]
     Indication: EAR INFECTION
  3. CLARITIN-D [Concomitant]

REACTIONS (5)
  - ARTHRALGIA [None]
  - IRRITABILITY [None]
  - JOINT SWELLING [None]
  - WEIGHT INCREASED [None]
  - WITHDRAWAL BLEEDING IRREGULAR [None]
